FAERS Safety Report 5730601-X (Version None)
Quarter: 2008Q2

REPORT INFORMATION
  Report Type: 
  Country: None (occurrence: None)
  Receive Date: 20080505
  Receipt Date: 20080505
  Transmission Date: 20081010
  Serious: Yes (Life-Threatening)
  Sender: FDA-Public Use
  Company Number: None

PATIENT
  Sex: Male
  Weight: 74.8435 kg

DRUGS (1)
  1. FLOMAX [Suspect]
     Indication: NEPHROLITHIASIS
     Dates: start: 20071209, end: 20071211

REACTIONS (3)
  - CHEST DISCOMFORT [None]
  - DRUG DOSE OMISSION [None]
  - VENTRICULAR TACHYCARDIA [None]
